FAERS Safety Report 8185900-1 (Version None)
Quarter: 2012Q1

REPORT INFORMATION
  Report Type: 
  Country: None (occurrence: None)
  Receive Date: 20120305
  Receipt Date: 20120229
  Transmission Date: 20120608
  Serious: Yes (Life-Threatening)
  Sender: FDA-Public Use
  Company Number: RU-ASTRAZENECA-2012SE14591

PATIENT
  Sex: Female

DRUGS (1)
  1. CRESTOR [Suspect]
     Indication: HYPERCHOLESTEROLAEMIA
     Route: 048
     Dates: start: 20120101

REACTIONS (3)
  - BLOOD CHOLESTEROL INCREASED [None]
  - ACUTE CORONARY SYNDROME [None]
  - DRUG INEFFECTIVE [None]
